FAERS Safety Report 9684593 (Version 1)
Quarter: 2013Q4

REPORT INFORMATION
  Report Type: Spontaneous
  Country: DE (occurrence: DE)
  Receive Date: 20131112
  Receipt Date: 20131112
  Transmission Date: 20140711
  Serious: Yes (Hospitalization)
  Sender: FDA-Public Use
  Company Number: DE-ASTRAZENECA-2013SE82271

PATIENT
  Age: 42 Year
  Sex: Male

DRUGS (6)
  1. SEROQUEL PROLONG [Suspect]
     Route: 048
  2. XEPLION [Interacting]
     Route: 030
     Dates: start: 20130726, end: 20130726
  3. HALDOL [Interacting]
     Route: 048
     Dates: start: 20130714, end: 20130727
  4. HALDOL [Interacting]
     Route: 048
     Dates: start: 20130728, end: 20130803
  5. HALDOL [Interacting]
     Route: 048
     Dates: start: 20130804, end: 20130807
  6. AKINETON RETARD [Concomitant]
     Route: 048
     Dates: start: 20130722, end: 20130807

REACTIONS (2)
  - Drug interaction [Unknown]
  - Vision blurred [Recovered/Resolved]
